FAERS Safety Report 4939669-1 (Version None)
Quarter: 2006Q1

REPORT INFORMATION
  Report Type: 
  Country: None (occurrence: None)
  Receive Date: 20060310
  Receipt Date: 20030605
  Transmission Date: 20060701
  Serious: Yes (Other)
  Sender: FDA-Public Use
  Company Number: US-MERCK-0306USA00881

PATIENT
  Age: 55 Year
  Sex: Female
  Weight: 99 kg

DRUGS (4)
  1. VIOXX [Suspect]
     Indication: ARTHRITIS
     Route: 048
     Dates: start: 19991101, end: 20000401
  2. VIOXX [Suspect]
     Route: 048
     Dates: start: 19991027, end: 19991101
  3. VIOXX [Suspect]
     Indication: MUSCULOSKELETAL PAIN
     Route: 048
     Dates: start: 19991101, end: 20000401
  4. VIOXX [Suspect]
     Route: 048
     Dates: start: 19991027, end: 19991101

REACTIONS (22)
  - ANXIETY DISORDER [None]
  - BACK PAIN [None]
  - BREAST ABSCESS [None]
  - DEPRESSION [None]
  - DIABETES MELLITUS NON-INSULIN-DEPENDENT [None]
  - DYSURIA [None]
  - EXOSTOSIS [None]
  - HOT FLUSH [None]
  - HYPERCHOLESTEROLAEMIA [None]
  - ISCHAEMIA [None]
  - MUSCLE SPASMS [None]
  - MYOCARDIAL INFARCTION [None]
  - NECK PAIN [None]
  - OBESITY [None]
  - OSTEOARTHRITIS [None]
  - OSTEOPENIA [None]
  - PLANTAR FASCIITIS [None]
  - SYNCOPE [None]
  - TIBIA FRACTURE [None]
  - UPPER RESPIRATORY TRACT INFECTION [None]
  - URINARY INCONTINENCE [None]
  - VISUAL DISTURBANCE [None]
